FAERS Safety Report 20624548 (Version 1)
Quarter: 2022Q1

REPORT INFORMATION
  Report Type: Spontaneous
  Country: CN (occurrence: CN)
  Receive Date: 20220322
  Receipt Date: 20220322
  Transmission Date: 20220423
  Serious: Yes (Other)
  Sender: FDA-Public Use
  Company Number: CN-BAXTER-2022BAX006184

PATIENT
  Age: 53 Year
  Sex: Female
  Weight: 67 kg

DRUGS (12)
  1. CYCLOPHOSPHAMIDE [Suspect]
     Active Substance: CYCLOPHOSPHAMIDE
     Indication: Breast cancer female
     Dosage: 1ST AND 2ND CHEMOTHERAPY; CYCLOPHOSPHAMIDE + NORMAL SALINE
     Route: 042
  2. CYCLOPHOSPHAMIDE [Suspect]
     Active Substance: CYCLOPHOSPHAMIDE
     Dosage: 3RD CHEMOTHERAPY; CYCLOPHOSPHAMIDE FOR INJECTION (ENDOXAN CTX) 950 MG + NS 50ML
     Route: 042
     Dates: start: 20220110, end: 20220110
  3. CYCLOPHOSPHAMIDE [Suspect]
     Active Substance: CYCLOPHOSPHAMIDE
     Dosage: DOSE REINTRODUCED; CYCLOPHOSPHAMIDE + NORMAL SALINE
     Route: 042
  4. SODIUM CHLORIDE [Suspect]
     Active Substance: SODIUM CHLORIDE
     Indication: Medication dilution
     Dosage: 1ST AND 2ND CHEMOTHERAPY; CYCLOPHOSPHAMIDE +NORMAL SALINE
     Route: 042
  5. SODIUM CHLORIDE [Suspect]
     Active Substance: SODIUM CHLORIDE
     Dosage: 3RD CHEMOTHERAPY; CYCLOPHOSPHAMIDE FOR INJECTION (ENDOXAN CTX) 950 MG + NS 50ML
     Route: 042
     Dates: start: 20220110, end: 20220110
  6. SODIUM CHLORIDE [Suspect]
     Active Substance: SODIUM CHLORIDE
     Dosage: DOSE REINTRODUCED; CYCLOPHOSPHAMIDE +NORMAL SALINE
     Route: 042
  7. SODIUM CHLORIDE [Suspect]
     Active Substance: SODIUM CHLORIDE
     Dosage: 1ST AND 2ND CHEMOTHERAPY; DOCETAXEL +NORMAL SALINE
     Route: 041
  8. SODIUM CHLORIDE [Suspect]
     Active Substance: SODIUM CHLORIDE
     Dosage: 3RD CHEMOTHERAPY; DOCETAXEL INJECTION (HUIYU) 132 MG + NS 250ML
     Route: 041
     Dates: start: 20220110, end: 20220110
  9. SODIUM CHLORIDE [Suspect]
     Active Substance: SODIUM CHLORIDE
     Dosage: DOSE REINTRODUCED; DOCETAXEL +NORMAL SALINE
     Route: 041
  10. DOCETAXEL [Suspect]
     Active Substance: DOCETAXEL
     Indication: Breast cancer female
     Dosage: 1ST AND 2ND CHEMOTHERAPY; DOCETAXEL + NORMAL SALINE
     Route: 041
  11. DOCETAXEL [Suspect]
     Active Substance: DOCETAXEL
     Dosage: 3RD CHEMOTHERAPY; DOCETAXEL INJECTION (HUIYU) 132 MG + NS 250ML
     Route: 041
     Dates: start: 20220110, end: 20220110
  12. DOCETAXEL [Suspect]
     Active Substance: DOCETAXEL
     Dosage: DOSE REINTRODUCED; DOCETAXEL + NORMAL SALINE
     Route: 041

REACTIONS (2)
  - White blood cell count decreased [Recovered/Resolved]
  - Agranulocytosis [Recovered/Resolved]

NARRATIVE: CASE EVENT DATE: 20220118
